FAERS Safety Report 24996144 (Version 1)
Quarter: 2025Q1

REPORT INFORMATION
  Report Type: Spontaneous
  Country: US (occurrence: US)
  Receive Date: 20250221
  Receipt Date: 20250221
  Transmission Date: 20250409
  Serious: No
  Sender: SANDOZ
  Company Number: US-SANDOZ-SDZ2025US006779

PATIENT

DRUGS (2)
  1. CIMERLI [Suspect]
     Active Substance: RANIBIZUMAB-EQRN
     Route: 065
  2. CIMERLI [Suspect]
     Active Substance: RANIBIZUMAB-EQRN
     Indication: Product used for unknown indication
     Route: 065

REACTIONS (1)
  - Product storage error [Unknown]
